FAERS Safety Report 9352082 (Version 2)
Quarter: 2013Q4

REPORT INFORMATION
  Report Type: Spontaneous
  Country: FR (occurrence: FR)
  Receive Date: 20130617
  Receipt Date: 20131210
  Transmission Date: 20140711
  Serious: Yes (Disabling)
  Sender: FDA-Public Use
  Company Number: FR-GILEAD-2013-0077268

PATIENT
  Age: 39 Year
  Sex: Female

DRUGS (7)
  1. ATRIPLA [Suspect]
     Indication: HIV INFECTION
     Dosage: 1 DF, UNK
     Dates: start: 20110510, end: 20130306
  2. TRUVADA [Suspect]
     Indication: HIV INFECTION
     Dosage: 1 DF, QD
     Dates: start: 20130307
  3. KALETRA [Suspect]
     Indication: HIV INFECTION
     Dosage: 2 DF, BID
     Dates: start: 20130307
  4. AMLOR [Suspect]
     Indication: HYPERTENSION
     Dosage: 5 MG, QD
     Dates: start: 20130110, end: 20130118
  5. ATACAND [Suspect]
     Indication: HYPERTENSION
     Dosage: 16 MG, QD
     Dates: start: 20130110, end: 20130118
  6. LOXEN [Concomitant]
     Dosage: UNK
     Dates: start: 20130119
  7. RHOPHYLAC [Concomitant]
     Dosage: UNK
     Dates: start: 20130222

REACTIONS (1)
  - Pregnancy [Recovered/Resolved]
